FAERS Safety Report 6749885-4 (Version None)
Quarter: 2010Q2

REPORT INFORMATION
  Report Type: 
  Country: None (occurrence: None)
  Receive Date: 20100527
  Receipt Date: 20100512
  Transmission Date: 20101027
  Serious: Yes (Hospitalization, Other)
  Sender: FDA-Public Use
  Company Number: AUR-APL-2010-01303

PATIENT
  Age: 10 Year
  Sex: Male

DRUGS (5)
  1. CIPROFLOXACIN [Suspect]
     Indication: INFECTION
  2. ACYCLOVIR [Suspect]
     Indication: HERPES SIMPLEX
     Dosage: 1500MG/M2/DAY,
  3. TEICOPLANIN [Suspect]
     Indication: SEPSIS
  4. MEROPENEM [Suspect]
     Indication: SEPSIS
  5. AMIKACIN [Suspect]
     Indication: SEPSIS

REACTIONS (17)
  - ACTIVATED PARTIAL THROMBOPLASTIN TIME PROLONGED [None]
  - ANTITHROMBIN III DECREASED [None]
  - BLOOD FIBRINOGEN DECREASED [None]
  - BLOOD LACTATE DEHYDROGENASE INCREASED [None]
  - BRADYCARDIA [None]
  - COMA SCALE ABNORMAL [None]
  - DRUG RESISTANCE [None]
  - ENCEPHALOPATHY [None]
  - GRAND MAL CONVULSION [None]
  - HERPES SIMPLEX [None]
  - HYPOTENSION [None]
  - LETHARGY [None]
  - MULTI-ORGAN FAILURE [None]
  - PLEURAL EFFUSION [None]
  - SALMONELLA SEPSIS [None]
  - THROMBOCYTOPENIA [None]
  - TYPHOID FEVER [None]
